FAERS Safety Report 10037239 (Version 1)
Quarter: 2014Q1

REPORT INFORMATION
  Report Type: Spontaneous
  Country: US (occurrence: None)
  Receive Date: 20140325
  Receipt Date: 20140325
  Transmission Date: 20141002
  Serious: Yes (Life-Threatening, Other)
  Sender: FDA-Public Use
  Company Number: None

PATIENT
  Age: 41 Year
  Sex: Female
  Weight: 68.49 kg

DRUGS (1)
  1. LEVOFLOXACIN [Suspect]
     Indication: SINUSITIS
     Dosage: 1 PILL
     Route: 048
     Dates: start: 20140318, end: 20140324

REACTIONS (10)
  - Panic attack [None]
  - Suicidal ideation [None]
  - Hallucinations, mixed [None]
  - Obsessive thoughts [None]
  - Insomnia [None]
  - Aphagia [None]
  - Feeling abnormal [None]
  - Cognitive disorder [None]
  - Anxiety [None]
  - Disturbance in attention [None]
